FAERS Safety Report 7341079-7 (Version None)
Quarter: 2011Q1

REPORT INFORMATION
  Report Type: 
  Country: None (occurrence: None)
  Receive Date: 20110309
  Receipt Date: 20110228
  Transmission Date: 20110831
  Serious: Yes (Hospitalization)
  Sender: FDA-Public Use
  Company Number: JP-CELGENEUS-087-21880-11023106

PATIENT
  Sex: Male

DRUGS (34)
  1. FUNGIZONE [Concomitant]
     Indication: PROPHYLAXIS
     Dosage: 16 MILLILITER
     Route: 048
     Dates: start: 20101216, end: 20110110
  2. PURSENNID [Concomitant]
     Dosage: 24 MILLIGRAM
     Route: 048
     Dates: start: 20101216, end: 20110110
  3. DENOSINE [Concomitant]
     Indication: PROPHYLAXIS
     Dosage: 125 MILLIGRAM
     Route: 041
     Dates: start: 20101224, end: 20101224
  4. ZYLORIC [Concomitant]
     Dosage: 100 MILLIGRAM
     Route: 048
     Dates: start: 20101221, end: 20110110
  5. JU-KAMA [Concomitant]
     Indication: PROPHYLAXIS
     Dosage: 2 GRAM
     Route: 048
     Dates: start: 20101216, end: 20110110
  6. OXYCONTIN [Concomitant]
     Dosage: 10 MILLIGRAM
     Route: 048
     Dates: start: 20101216, end: 20110110
  7. NOVAMIN [Concomitant]
     Indication: PROPHYLAXIS
     Dosage: 15 MILLIGRAM
     Route: 048
     Dates: start: 20101216, end: 20110110
  8. WINTERMIN [Concomitant]
     Dosage: 10 MILLIGRAM
     Route: 048
     Dates: start: 20101219, end: 20101225
  9. DESYREL [Concomitant]
     Dosage: 50 MILLIGRAM
     Route: 048
     Dates: start: 20101222, end: 20110110
  10. TETRAMIDE [Concomitant]
     Dosage: 10 MILLIGRAM
     Route: 048
     Dates: start: 20101222, end: 20101222
  11. SEROQUEL [Concomitant]
     Dosage: 50 MILLIGRAM
     Route: 048
     Dates: start: 20101225, end: 20101225
  12. REVLIMID [Suspect]
     Dosage: 10 MILLIGRAM
     Route: 048
     Dates: start: 20101229, end: 20110104
  13. ACYCRIL [Concomitant]
     Indication: PROPHYLAXIS
     Dosage: 500 MILLIGRAM
     Route: 041
     Dates: start: 20101224, end: 20110110
  14. KAYTWO N [Concomitant]
     Dosage: 10 MILLIGRAM
     Route: 041
     Dates: start: 20101224, end: 20101229
  15. LECICARBON [Concomitant]
     Dosage: 1
     Route: 065
     Dates: start: 20101226, end: 20110110
  16. REVLIMID [Suspect]
     Dosage: 5 MILLIGRAM
     Route: 048
     Dates: start: 20101222, end: 20101228
  17. IMMUNE GLOBULIN NOS [Concomitant]
     Indication: PROPHYLAXIS
     Dosage: ADEQUATE DOSE
     Route: 062
     Dates: start: 20101216, end: 20110110
  18. ASPIRIN [Concomitant]
     Indication: PROPHYLAXIS
     Dosage: 100 MILLIGRAM
     Route: 048
     Dates: start: 20101220, end: 20110110
  19. CALONAL [Concomitant]
     Dosage: 400 MILLIGRAM
     Route: 048
     Dates: start: 20101223, end: 20101224
  20. VELCADE [Concomitant]
     Indication: MULTIPLE MYELOMA
     Dosage: 1.3 MILLIGRAM/SQ. METER
     Route: 041
     Dates: start: 20101221, end: 20101221
  21. KYTRIL [Concomitant]
     Indication: PROPHYLAXIS
     Dosage: 3 MILLIGRAM
     Route: 041
     Dates: start: 20101221, end: 20101228
  22. LAXOBERON [Concomitant]
     Dosage: 15 DROPS
     Route: 048
     Dates: start: 20101226, end: 20110105
  23. DEXART [Concomitant]
     Indication: MULTIPLE MYELOMA
     Dosage: 16.5 MILLIGRAM
     Route: 041
     Dates: start: 20101221, end: 20101221
  24. DEXART [Concomitant]
     Dosage: 16.5 MILLIGRAM
     Route: 041
     Dates: start: 20101228, end: 20101228
  25. ZOSYN [Concomitant]
     Indication: PROPHYLAXIS
     Dosage: 2.25 GRAM
     Route: 041
     Dates: start: 20101224, end: 20101229
  26. VELCADE [Concomitant]
     Dosage: 1.3 MILLIGRAM/SQ. METER
     Route: 041
     Dates: start: 20101228, end: 20101228
  27. LASIX [Concomitant]
     Indication: CARDIAC FAILURE
     Dosage: 120 MILLIGRAM
     Route: 041
     Dates: start: 20101218, end: 20101229
  28. FUNGUARD [Concomitant]
     Indication: PROPHYLAXIS
     Dosage: 150 MILLIGRAM
     Route: 041
     Dates: start: 20101224, end: 20110104
  29. ZYLORIC [Concomitant]
     Indication: PROPHYLAXIS
     Dosage: 200 MILLIGRAM
     Route: 048
     Dates: start: 20101216, end: 20101220
  30. REVLIMID [Suspect]
     Indication: MULTIPLE MYELOMA
     Dosage: 25 MILLIGRAM
     Route: 048
     Dates: start: 20101221, end: 20101221
  31. ROCEPHIN [Concomitant]
     Indication: PROPHYLAXIS
     Dosage: 1 GRAM
     Route: 041
     Dates: start: 20101223, end: 20101224
  32. OXINORM [Concomitant]
     Dosage: 5 MILLIGRAM
     Route: 048
     Dates: start: 20101216, end: 20101229
  33. ZYPREXA [Concomitant]
     Dosage: 5 MILLIGRAM
     Route: 048
     Dates: start: 20101225, end: 20101225
  34. LYRICA [Concomitant]
     Dosage: 75 MILLIGRAM
     Route: 048
     Dates: start: 20101227, end: 20110109

REACTIONS (1)
  - LEUKOENCEPHALOPATHY [None]
